FAERS Safety Report 25063420 (Version 7)
Quarter: 2025Q4

REPORT INFORMATION
  Report Type: Spontaneous
  Country: CA (occurrence: CA)
  Receive Date: 20250311
  Receipt Date: 20251208
  Transmission Date: 20260118
  Serious: Yes (Other)
  Sender: PFIZER
  Company Number: CA-PFIZER INC-202500052546

PATIENT
  Age: 71 Year
  Sex: Male

DRUGS (8)
  1. CIBINQO [Suspect]
     Active Substance: ABROCITINIB
     Indication: Dermatitis atopic
     Dosage: 100 MG
     Route: 048
     Dates: start: 2024
  2. CIBINQO [Suspect]
     Active Substance: ABROCITINIB
     Dosage: 200 MG, 1X/DAY
     Route: 048
     Dates: start: 2024
  3. CIBINQO [Suspect]
     Active Substance: ABROCITINIB
     Dosage: 1 DF, 100MG FROM MAY TO OCTOBER, 200MG FROM NOVEMBER TO APRIL
     Route: 048
     Dates: start: 2024
  4. ARISTOCORT [TRIAMCINOLONE] [Concomitant]
     Dosage: 1 DF
  5. DESONIDE [Concomitant]
     Active Substance: DESONIDE
     Dosage: 1 DF
  6. PROTOPIC [Concomitant]
     Active Substance: TACROLIMUS
     Dosage: 1 DF
  7. VENTOLIN [Concomitant]
     Active Substance: ALBUTEROL SULFATE
     Dosage: 1 DF
  8. ZENHALE [Concomitant]
     Active Substance: FORMOTEROL FUMARATE\MOMETASONE FUROATE
     Dosage: 1 DF

REACTIONS (5)
  - Prostate cancer [Unknown]
  - Lacrimation increased [Unknown]
  - Paraesthesia [Unknown]
  - Fatigue [Unknown]
  - Pain in extremity [Unknown]

NARRATIVE: CASE EVENT DATE: 20250101
